FAERS Safety Report 10817958 (Version 1)
Quarter: 2015Q1

REPORT INFORMATION
  Report Type: Spontaneous
  Country: US (occurrence: US)
  Receive Date: 20150218
  Receipt Date: 20150218
  Transmission Date: 20150721
  Serious: No
  Sender: FDA-Public Use
  Company Number: US-GLAXOSMITHKLINE-US2015GSK021656

PATIENT
  Sex: Female

DRUGS (1)
  1. VOTRIENT [Suspect]
     Active Substance: PAZOPANIB HYDROCHLORIDE
     Indication: RENAL CANCER
     Dosage: 400 MG, BID
     Route: 048
     Dates: start: 20150123

REACTIONS (6)
  - Blood glucose increased [Unknown]
  - Urine odour abnormal [Unknown]
  - Urine abnormality [Unknown]
  - Skin exfoliation [Unknown]
  - Rash [Unknown]
  - Blood pressure increased [Unknown]
